FAERS Safety Report 10767909 (Version 2)
Quarter: 2015Q1

REPORT INFORMATION
  Report Type: Spontaneous
  Country: VE (occurrence: VE)
  Receive Date: 20150205
  Receipt Date: 20150212
  Transmission Date: 20150721
  Serious: Yes (Death, Other)
  Sender: FDA-Public Use
  Company Number: VE-AMGEN-VENSP2014023091

PATIENT
  Age: 40 Year
  Sex: Male
  Weight: 60 kg

DRUGS (9)
  1. FOLINIC ACID [Concomitant]
     Active Substance: LEUCOVORIN
     Indication: METASTASES TO PELVIS
  2. VECTIBIX [Suspect]
     Active Substance: PANITUMUMAB
     Indication: RECTAL CANCER
     Dosage: 20 MG/ML, 4 AMPOULES CYCLICAL
     Route: 042
     Dates: start: 20140123, end: 201501
  3. IRINOTECAN [Concomitant]
     Active Substance: IRINOTECAN
     Indication: METASTASES TO PELVIS
  4. OXALIPLATIN. [Concomitant]
     Active Substance: OXALIPLATIN
     Indication: RECTAL CANCER
     Dosage: 50 MG/ML, EVERY FIFTEEN DAYS
     Route: 042
     Dates: start: 20140123
  5. FOLINIC ACID [Concomitant]
     Active Substance: LEUCOVORIN
     Indication: RECTAL CANCER
     Dosage: UNK
  6. IRINOTECAN [Concomitant]
     Active Substance: IRINOTECAN
     Indication: RECTAL CANCER
     Dosage: 40 MG/2ML EVERY FIFTEEN DAYS
     Route: 042
     Dates: start: 20140123
  7. 5 FU [Concomitant]
     Active Substance: FLUOROURACIL
     Indication: RECTAL CANCER
     Dosage: UNK
  8. 5 FU [Concomitant]
     Active Substance: FLUOROURACIL
     Indication: METASTASES TO PELVIS
  9. OXALIPLATIN. [Concomitant]
     Active Substance: OXALIPLATIN
     Indication: METASTASES TO PELVIS

REACTIONS (6)
  - Pelvic discomfort [Unknown]
  - Rash [Recovering/Resolving]
  - Disease progression [Unknown]
  - Oedema peripheral [Unknown]
  - Thrombosis [Unknown]
  - Pulmonary embolism [Fatal]

NARRATIVE: CASE EVENT DATE: 2014
